FAERS Safety Report 17112496 (Version 1)
Quarter: 2019Q4

REPORT INFORMATION
  Report Type: Spontaneous
  Country: JP (occurrence: JP)
  Receive Date: 20191204
  Receipt Date: 20191204
  Transmission Date: 20200122
  Serious: Yes (Hospitalization, Other)
  Sender: FDA-Public Use
  Company Number: JP-ELI_LILLY_AND_COMPANY-JP201912000324

PATIENT
  Age: 70 Year
  Sex: Male
  Weight: 44 kg

DRUGS (7)
  1. CARBOPLATIN. [Concomitant]
     Active Substance: CARBOPLATIN
     Indication: HYPOPHARYNGEAL CANCER
     Dosage: 100 MG/M2, WEEKLY (1/W)
     Route: 041
     Dates: start: 20171212
  2. PACLITAXEL. [Concomitant]
     Active Substance: PACLITAXEL
     Indication: HYPOPHARYNGEAL CANCER
     Dosage: -1 UNK, WEEKLY (1/W)
     Route: 041
     Dates: start: 20171212, end: 20180201
  3. ERBITUX [Suspect]
     Active Substance: CETUXIMAB
     Indication: HYPOPHARYNGEAL CANCER
     Dosage: 400 MG/M2, UNK
     Route: 041
     Dates: start: 20171212
  4. ERBITUX [Suspect]
     Active Substance: CETUXIMAB
     Dosage: 250 MG/M2, WEEKLY (1/W)
     Route: 041
     Dates: start: 201712
  5. FENTOS [Concomitant]
     Active Substance: FENTANYL
     Indication: PAIN
     Dosage: 1 MG, DAILY
     Route: 061
     Dates: start: 20180104, end: 20181220
  6. CALONAL [Concomitant]
     Active Substance: ACETAMINOPHEN
     Indication: PRODUCT USED FOR UNKNOWN INDICATION
     Dosage: 400 MG, UNK
     Route: 048
     Dates: start: 20171128
  7. MAGNESIUM OXIDE. [Concomitant]
     Active Substance: MAGNESIUM OXIDE
     Indication: PRODUCT USED FOR UNKNOWN INDICATION
     Dosage: 660 MG, UNK
     Route: 048
     Dates: start: 20171215

REACTIONS (2)
  - Infection [Recovered/Resolved]
  - Delirium [Unknown]

NARRATIVE: CASE EVENT DATE: 20180109
